FAERS Safety Report 7217871-6 (Version None)
Quarter: 2011Q1

REPORT INFORMATION
  Report Type: 
  Country: None (occurrence: None)
  Receive Date: 20110110
  Receipt Date: 20110105
  Transmission Date: 20110831
  Serious: Yes (Hospitalization)
  Sender: FDA-Public Use
  Company Number: US-AMGEN-USASP2011000682

PATIENT

DRUGS (1)
  1. ENBREL [Suspect]
     Indication: PSORIATIC ARTHROPATHY
     Dosage: 50 MG, QWK
     Dates: start: 20100615

REACTIONS (4)
  - SPINAL FRACTURE [None]
  - NERVE COMPRESSION [None]
  - ROAD TRAFFIC ACCIDENT [None]
  - DEVICE FAILURE [None]
